FAERS Safety Report 18233477 (Version 74)
Quarter: 2025Q1

REPORT INFORMATION
  Report Type: Report from Study
  Country: DE (occurrence: DE)
  Receive Date: 20200904
  Receipt Date: 20250130
  Transmission Date: 20250408
  Serious: Yes (Death, Life-Threatening, Hospitalization, Other)
  Sender: PFIZER
  Company Number: DE-002147023-PHHY2019DE168419

PATIENT
  Age: 77 Year
  Sex: Female
  Weight: 55 kg

DRUGS (48)
  1. PALBOCICLIB [Suspect]
     Active Substance: PALBOCICLIB
     Indication: Breast cancer metastatic
     Route: 048
     Dates: start: 20190820, end: 20200106
  2. PALBOCICLIB [Suspect]
     Active Substance: PALBOCICLIB
     Indication: Hormone receptor positive HER2 negative breast cancer
     Dosage: 100 MG, QD (ADMINISTRATION SCHEME 21 DAYS INTAKE, 7 DAYS PAUSE)
     Route: 048
     Dates: start: 20200114, end: 20200601
  3. PALBOCICLIB [Suspect]
     Active Substance: PALBOCICLIB
     Route: 048
     Dates: start: 20200601
  4. PALBOCICLIB [Suspect]
     Active Substance: PALBOCICLIB
     Dosage: 100 MG, QD (ADMINISTRATION SCHEME 21 DAYS INTAKE, 7 DAYS PAUSE)
     Route: 048
     Dates: start: 20200603, end: 20200728
  5. PALBOCICLIB [Suspect]
     Active Substance: PALBOCICLIB
     Dosage: 100 MG, QD (ADMINISTRATION SCHEME 21 DAYS INTAKE, 7 DAYS PAUSE)
     Route: 048
     Dates: start: 20200812, end: 20210907
  6. PALBOCICLIB [Suspect]
     Active Substance: PALBOCICLIB
     Route: 048
     Dates: start: 20200909, end: 20201103
  7. PALBOCICLIB [Suspect]
     Active Substance: PALBOCICLIB
     Dosage: 100 MG, QD (ADMINISTRATION SCHEME 21 DAYS INTAKE, 7 DAYS PAUSE)
     Route: 048
     Dates: start: 20210909, end: 20211103
  8. PALBOCICLIB [Suspect]
     Active Substance: PALBOCICLIB
     Dosage: 100 MG, QD (ADMINISTRATION SCHEME 21 DAYS INTAKE, 7 DAYS PAUSE)
     Route: 048
     Dates: start: 20211111, end: 20220823
  9. PALBOCICLIB [Suspect]
     Active Substance: PALBOCICLIB
     Dosage: 75 MG, QD (ADMINISTRATION SCHEME 21 DAYS INTAKE, 7 DAYS PAUSE)
     Route: 048
     Dates: start: 20220901, end: 20221102
  10. PALBOCICLIB [Suspect]
     Active Substance: PALBOCICLIB
     Dosage: 75 MG, QD (ADMINISTRATION SCHEME 21 DAYS INTAKE, 7 DAYS PAUSE)
     Route: 048
     Dates: start: 20221116, end: 20221129
  11. PALBOCICLIB [Suspect]
     Active Substance: PALBOCICLIB
     Dosage: 75 MG, QD (ADMINISTRATION SCHEME 21 DAYS INTAKE, 7 DAYS PAUSE)
     Route: 048
     Dates: start: 20221207, end: 20230710
  12. PALBOCICLIB [Suspect]
     Active Substance: PALBOCICLIB
     Dosage: 100 MG, QD (STARTED ON 14 JAN 2020, CYCLIC (SCHEME 21 DAYS INTAKE, 7 DAYS PAUSE)
  13. PALBOCICLIB [Suspect]
     Active Substance: PALBOCICLIB
     Dosage: 100 MG, QD, 14-JAN-2020 (SCHEME 21 DAYS INTAKE, 7 DAYS PAUSE)
  14. PALBOCICLIB [Suspect]
     Active Substance: PALBOCICLIB
     Dosage: 100 MG, QD, START DATE: 03-JUN-2020 (SCHEME 21 DAYS INTAKE, 7 DAYS PAUSE)
  15. PALBOCICLIB [Suspect]
     Active Substance: PALBOCICLIB
     Dosage: 100 MG, QD, START DATE:12-AUG-2020 (SCHEME 21 DAYS INTAKE, 7 DAYS PAUSE)
  16. PALBOCICLIB [Suspect]
     Active Substance: PALBOCICLIB
     Dosage: 100 MG, QD, 09-SEP-2021 (SCHEME 21 DAYS INTAKE, 7 DAYS PAUSE)
  17. PALBOCICLIB [Suspect]
     Active Substance: PALBOCICLIB
     Dosage: 100 MG, QD (SCHEME 21 DAYS INTAKE, 7 DAYS PAUSE),11-NOV-2021
  18. PALBOCICLIB [Suspect]
     Active Substance: PALBOCICLIB
     Dosage: 75 MG, QD (SCHEME 21 DAYS INTAKE, 7 DAYS PAUSE), 01-SEP-2022
  19. PALBOCICLIB [Suspect]
     Active Substance: PALBOCICLIB
     Dosage: 75 MG, QD (SCHEME 21 DAYS INTAKE, 7 DAYS PAUSE),16-NOV-2022
  20. PALBOCICLIB [Suspect]
     Active Substance: PALBOCICLIB
     Dosage: 75 MG, QD (SCHEME 21 DAYS INTAKE, 7 DAYS PAUSE), 07-DEC-2022
  21. LETROZOLE [Suspect]
     Active Substance: LETROZOLE
     Indication: Breast cancer metastatic
     Dosage: 2.5 MG, QD
     Route: 048
     Dates: start: 20190704, end: 20190819
  22. LETROZOLE [Suspect]
     Active Substance: LETROZOLE
     Indication: Hormone receptor positive HER2 negative breast cancer
     Dosage: 2.5 MG, QD, START DATE: 04-JUL-2019
     Dates: start: 20190704
  23. LETROZOLE [Suspect]
     Active Substance: LETROZOLE
     Indication: Hormone receptor positive HER2 negative breast cancer
     Dosage: 2.5 MG, QD
     Route: 048
     Dates: start: 20190819
  24. LETROZOLE [Suspect]
     Active Substance: LETROZOLE
     Indication: Breast cancer metastatic
     Dosage: 2.5 MG, QD
     Route: 048
     Dates: start: 20190819
  25. LETROZOLE [Suspect]
     Active Substance: LETROZOLE
     Indication: Breast cancer
  26. KISQALI [Suspect]
     Active Substance: RIBOCICLIB
     Indication: Hormone receptor positive HER2 negative breast cancer
     Dosage: 600 MG, QD (ADMINISTRATION SCHEME 21 DAYS INTAKE, 7 DAYS PAUSE)
     Route: 048
     Dates: start: 20190704, end: 20190717
  27. KISQALI [Suspect]
     Active Substance: RIBOCICLIB
     Indication: Breast cancer metastatic
     Dosage: UNK, QD
     Route: 048
     Dates: start: 20190718, end: 20190807
  28. KISQALI [Suspect]
     Active Substance: RIBOCICLIB
     Indication: Hormone receptor positive HER2 negative breast cancer
     Dosage: 400 MG, QD (ADMINISTRATION SCHEME 21 DAYS INTAKE, 7 DAYS PAUSE)
     Route: 048
     Dates: start: 20190808, end: 20190808
  29. TORSEMIDE [Suspect]
     Active Substance: TORSEMIDE
     Indication: Atrial fibrillation
     Dosage: 10 MG (A HALF IN THE MORNING)
     Route: 065
     Dates: start: 20200727, end: 20220901
  30. TORSEMIDE [Suspect]
     Active Substance: TORSEMIDE
     Indication: Oedema peripheral
     Dosage: 10 MG,  QD (1X DAILY (MORNING)
     Route: 065
     Dates: start: 20230801, end: 20230828
  31. TORSEMIDE [Suspect]
     Active Substance: TORSEMIDE
     Indication: Pleural effusion
     Dosage: 10 MG, (1-0.5-0-0 ) (1/2 X 10MG AT AFTERNOON)
     Route: 065
     Dates: start: 20230801, end: 20230828
  32. TORSEMIDE [Suspect]
     Active Substance: TORSEMIDE
     Indication: Cardiac failure
     Dosage: 10 MG,  QD (1X DAILY (MORNING)
     Route: 065
     Dates: start: 20230829
  33. FULVESTRANT [Suspect]
     Active Substance: FULVESTRANT
     Route: 065
     Dates: start: 20190819, end: 20190819
  34. FULVESTRANT [Suspect]
     Active Substance: FULVESTRANT
     Dates: start: 20190820, end: 20200106
  35. FULVESTRANT [Suspect]
     Active Substance: FULVESTRANT
     Route: 065
     Dates: start: 20230709, end: 20230709
  36. FULVESTRANT [Suspect]
     Active Substance: FULVESTRANT
     Route: 065
  37. FULVESTRANT [Suspect]
     Active Substance: FULVESTRANT
  38. FULVESTRANT [Suspect]
     Active Substance: FULVESTRANT
     Route: 042
     Dates: start: 20190819
  39. ASPIRIN [Concomitant]
     Active Substance: ASPIRIN
     Indication: Product used for unknown indication
     Dosage: 100 MG, QD (ONCE PER DAY AT NOON)
     Route: 065
     Dates: start: 2000
  40. BISOPROLOL FUMARATE\HYDROCHLOROTHIAZIDE [Concomitant]
     Active Substance: BISOPROLOL FUMARATE\HYDROCHLOROTHIAZIDE
     Dosage: 0.5 DF, 1X/DAY IN AM
     Route: 065
     Dates: start: 2000
  41. CALCIUM [Concomitant]
     Active Substance: CALCIUM
     Indication: Product used for unknown indication
     Dosage: 400 MG, QD (ONCE PER DAY AT NOON)
     Route: 065
     Dates: start: 2016
  42. CHOLECALCIFEROL [Concomitant]
     Active Substance: CHOLECALCIFEROL
     Indication: Product used for unknown indication
     Dosage: 20000 IU, QMO (MONTHLY)
     Route: 065
     Dates: start: 2016
  43. AMLODIPINE BESYLATE\OLMESARTAN MEDOXOMIL [Concomitant]
     Active Substance: AMLODIPINE BESYLATE\OLMESARTAN MEDOXOMIL
     Indication: Product used for unknown indication
     Dosage: 40 MG, QD (ONCE PER DAY IN THE MORNING)
     Route: 065
     Dates: start: 2019
  44. BISOPROLOL [Concomitant]
     Active Substance: BISOPROLOL
     Dosage: 0.5 QD (10/25 MG), (ONCE PER DAY IN AM)
     Route: 065
     Dates: start: 2000
  45. BISOPROLOL [Concomitant]
     Active Substance: BISOPROLOL
     Dosage: 40 MG, QD (ONCE PER DAY IN THE MORNING)
     Dates: start: 2019
  46. NOVALGIN (METAMIZOLE SODIUM) [Concomitant]
     Active Substance: METAMIZOLE SODIUM
     Route: 065
     Dates: start: 201904
  47. LEVOTHYROXINE [Concomitant]
     Active Substance: LEVOTHYROXINE
     Dosage: 88 UG QD (ONCE PER DAY IN AM)
     Route: 065
     Dates: start: 2011
  48. DAPAGLIFLOZIN [Concomitant]
     Active Substance: DAPAGLIFLOZIN
     Indication: Hyponatraemia
     Dosage: 10 MG, 1X/DAY
     Dates: start: 20220921

REACTIONS (39)
  - Urosepsis [Fatal]
  - Septic shock [Fatal]
  - Blood creatinine increased [Not Recovered/Not Resolved]
  - Chronic kidney disease [Not Recovered/Not Resolved]
  - Asthenia [Recovered/Resolved]
  - Nephrolithiasis [Recovered/Resolved]
  - Glomerular filtration rate decreased [Recovering/Resolving]
  - Hyponatraemia [Recovered/Resolved]
  - Acute kidney injury [Recovered/Resolved]
  - Cardiac failure congestive [Recovered/Resolved with Sequelae]
  - Cardiac failure [Recovered/Resolved with Sequelae]
  - Atrial fibrillation [Recovered/Resolved]
  - Anaemia [Not Recovered/Not Resolved]
  - Renal impairment [Not Recovered/Not Resolved]
  - Hydronephrosis [Recovered/Resolved with Sequelae]
  - Osteoarthritis [Recovered/Resolved]
  - Cardiac failure congestive [Not Recovered/Not Resolved]
  - Hypertension [Recovered/Resolved]
  - Electrocardiogram QT prolonged [Recovered/Resolved]
  - Urinary retention [Not Recovered/Not Resolved]
  - Osteoarthritis [Not Recovered/Not Resolved]
  - Blood pressure increased [Not Recovered/Not Resolved]
  - Concomitant disease aggravated [Recovering/Resolving]
  - Blood pressure increased [Recovered/Resolved]
  - Bladder tamponade [Recovered/Resolved with Sequelae]
  - Osteoarthritis [Not Recovered/Not Resolved]
  - Dyspnoea [Not Recovered/Not Resolved]
  - Cystitis [Recovered/Resolved]
  - Dry skin [Recovered/Resolved]
  - Bronchitis [Recovered/Resolved]
  - Blood alkaline phosphatase increased [Recovered/Resolved]
  - Blood thyroid stimulating hormone increased [Recovered/Resolved]
  - Urinary tract infection [Not Recovered/Not Resolved]
  - Pleural effusion [Recovering/Resolving]
  - Blood glucose increased [Recovering/Resolving]
  - Oedema peripheral [Recovered/Resolved]
  - C-reactive protein increased [Not Recovered/Not Resolved]
  - Infection [Recovered/Resolved]
  - Glomerular filtration rate decreased [Not Recovered/Not Resolved]

NARRATIVE: CASE EVENT DATE: 20200727
